FAERS Safety Report 8894239 (Version 1)
Quarter: 2012Q4

REPORT INFORMATION
  Report Type: 
  Country: KR (occurrence: KR)
  Receive Date: 20121108
  Receipt Date: 20121108
  Transmission Date: 20130627
  Serious: Yes (Other)
  Sender: FDA-Public Use
  Company Number: KR-009507513-1210KOR013011

PATIENT
  Age: 39 Year
  Sex: Female

DRUGS (1)
  1. IMPLANON [Suspect]
     Indication: CONTRACEPTION
     Dosage: UNK
     Route: 059
     Dates: start: 20120921, end: 20121030

REACTIONS (2)
  - Abortion induced [Recovered/Resolved]
  - Unintended pregnancy [Recovered/Resolved]
